FAERS Safety Report 10013844 (Version 2)
Quarter: 2014Q1

REPORT INFORMATION
  Report Type: Spontaneous
  Country: US (occurrence: US)
  Receive Date: 20140316
  Receipt Date: 20140316
  Transmission Date: 20141002
  Serious: Yes (Disabling)
  Sender: FDA-Public Use
  Company Number: US-GE HEALTHCARE MEDICAL DIAGNOSTICS-OSCN-PR-1106S-0156

PATIENT
  Sex: Female
  Weight: 84.2 kg

DRUGS (14)
  1. OMNISCAN [Suspect]
     Indication: PRODUCT USED FOR UNKNOWN INDICATION
     Route: 065
     Dates: start: 20060308, end: 20060308
  2. OMNISCAN [Suspect]
     Route: 065
     Dates: start: 20060908, end: 20060908
  3. OMNISCAN [Suspect]
     Route: 065
     Dates: start: 20060928, end: 20060928
  4. GADOLINIUM (UNSPECIFIED) [Suspect]
     Indication: PRODUCT USED FOR UNKNOWN INDICATION
     Route: 065
     Dates: start: 20020513, end: 20020513
  5. GADOLINIUM (UNSPECIFIED) [Suspect]
     Route: 065
     Dates: start: 20030622, end: 20030622
  6. GADOLINIUM (UNSPECIFIED) [Suspect]
     Route: 065
     Dates: start: 20030824, end: 20030824
  7. GADOLINIUM (UNSPECIFIED) [Suspect]
     Route: 065
     Dates: start: 20030926, end: 20030926
  8. GADOLINIUM (UNSPECIFIED) [Suspect]
     Route: 065
     Dates: start: 20031018, end: 20031018
  9. GADOLINIUM (UNSPECIFIED) [Suspect]
     Route: 065
     Dates: start: 20040518, end: 20040518
  10. GADOLINIUM (UNSPECIFIED) [Suspect]
     Route: 065
     Dates: start: 20041202, end: 20041202
  11. GADOLINIUM (UNSPECIFIED) [Suspect]
     Route: 065
     Dates: start: 20041230, end: 20041230
  12. GADOLINIUM (UNSPECIFIED) [Suspect]
     Route: 065
     Dates: start: 20050807, end: 20050807
  13. GADOLINIUM (UNSPECIFIED) [Suspect]
     Route: 065
     Dates: start: 20051015, end: 20051015
  14. EPOGEN [Concomitant]
     Indication: PRODUCT USED FOR UNKNOWN INDICATION

REACTIONS (1)
  - Nephrogenic systemic fibrosis [Not Recovered/Not Resolved]
